FAERS Safety Report 5352179-5 (Version None)
Quarter: 2007Q2

REPORT INFORMATION
  Report Type: 
  Country: None (occurrence: None)
  Receive Date: 20070606
  Receipt Date: 20070521
  Transmission Date: 20071010
  Serious: Yes (Other)
  Sender: FDA-Public Use
  Company Number: DSA_29978_2007

PATIENT
  Sex: Female

DRUGS (2)
  1. RENIVACE (RENIVACE TABLETS) [Suspect]
     Dosage: 1 DF TID ORAL
     Route: 048
  2. TIMOPTOL (TIMOLOL MALEATE) (NOT SPECIFIED) [Suspect]
     Dosage: 2  DF TID  INTRAOCULAR
     Route: 031

REACTIONS (4)
  - DIZZINESS [None]
  - DRUG INEFFECTIVE [None]
  - OVERDOSE [None]
  - TREATMENT NONCOMPLIANCE [None]
